FAERS Safety Report 16694046 (Version 1)
Quarter: 2019Q3

REPORT INFORMATION
  Report Type: Spontaneous
  Country: US (occurrence: US)
  Receive Date: 20190626
  Receipt Date: 20190626
  Transmission Date: 20191004
  Serious: No
  Sender: FDA-Public Use
  Company Number: None

PATIENT
  Age: 26 Year
  Sex: Female

DRUGS (1)
  1. ORKAMBI [Suspect]
     Active Substance: IVACAFTOR\LUMACAFTOR
     Dates: start: 201902

REACTIONS (3)
  - Pre-existing condition improved [None]
  - Therapy cessation [None]
  - Prescribed underdose [None]

NARRATIVE: CASE EVENT DATE: 20190626
